FAERS Safety Report 5920693-7 (Version None)
Quarter: 2008Q4

REPORT INFORMATION
  Report Type: 
  Country: None (occurrence: None)
  Receive Date: 20081016
  Receipt Date: 20080905
  Transmission Date: 20090506
  Serious: No
  Sender: FDA-Public Use
  Company Number: US-BAYER-200833045NA

PATIENT
  Age: 51 Year
  Sex: Female
  Weight: 60 kg

DRUGS (1)
  1. MIRENA [Suspect]
     Indication: CONTRACEPTION
     Route: 015
     Dates: start: 20080708, end: 20080908

REACTIONS (8)
  - ABDOMINAL PAIN [None]
  - DIZZINESS [None]
  - DYSPAREUNIA [None]
  - MIGRAINE [None]
  - PHOTOPSIA [None]
  - PROCEDURAL PAIN [None]
  - VERTIGO [None]
  - VOMITING [None]
